FAERS Safety Report 5574243-8 (Version None)
Quarter: 2007Q4

REPORT INFORMATION
  Report Type: 
  Country: None (occurrence: None)
  Receive Date: 20071227
  Receipt Date: 20071219
  Transmission Date: 20080405
  Serious: Yes (Hospitalization)
  Sender: FDA-Public Use
  Company Number: JP-BRISTOL-MYERS SQUIBB COMPANY-14024772

PATIENT
  Age: 58 Year
  Sex: Male

DRUGS (4)
  1. PRAVASTATIN SODIUM [Suspect]
     Indication: HYPERLIPIDAEMIA
     Route: 048
     Dates: start: 20070315, end: 20070414
  2. BEZATOL SR [Suspect]
     Indication: HYPERLIPIDAEMIA
     Dosage: TABLET FORM
     Route: 048
     Dates: start: 20070315, end: 20070414
  3. TIGASON [Concomitant]
     Indication: PSORIASIS
     Route: 048
     Dates: start: 20070131, end: 20070430
  4. ALLELOCK [Concomitant]
     Indication: PSORIASIS
     Route: 048
     Dates: start: 20070131, end: 20070430

REACTIONS (2)
  - HYPOTHYROIDISM [None]
  - RHABDOMYOLYSIS [None]
